FAERS Safety Report 7645905-3 (Version None)
Quarter: 2011Q3

REPORT INFORMATION
  Report Type: 
  Country: None (occurrence: None)
  Receive Date: 20110729
  Receipt Date: 20110721
  Transmission Date: 20111222
  Serious: Yes (Other)
  Sender: FDA-Public Use
  Company Number: BR-GENENTECH-305076

PATIENT
  Sex: Female
  Weight: 65.8 kg

DRUGS (16)
  1. SOTALOL HYDROCHLORIDE [Concomitant]
     Indication: PRODUCT USED FOR UNKNOWN INDICATION
     Dosage: 120 MG, UNK
  2. PREDNISOLONE [Concomitant]
     Indication: PRODUCT USED FOR UNKNOWN INDICATION
     Dosage: 10 MG, UNK
  3. PREDNISOLONE [Concomitant]
     Dosage: 5 MG, UNK
  4. METOCLOPRAMIDE [Concomitant]
     Indication: PRODUCT USED FOR UNKNOWN INDICATION
  5. SOLU-MEDROL [Suspect]
     Indication: PREMEDICATION
     Dosage: UNK
     Route: 065
     Dates: start: 20101020
  6. LASIX [Concomitant]
     Indication: PRODUCT USED FOR UNKNOWN INDICATION
     Dosage: 40 MG, UNK
  7. CALCIUM ACETATE [Concomitant]
     Indication: PRODUCT USED FOR UNKNOWN INDICATION
     Dosage: UNK
  8. POLARAMINE [Concomitant]
     Indication: PRODUCT USED FOR UNKNOWN INDICATION
     Dosage: UNK
     Dates: start: 20101020
  9. CLOPIDOGREL [Concomitant]
     Indication: PRODUCT USED FOR UNKNOWN INDICATION
  10. DEXAMETHASONE [Concomitant]
     Indication: PRODUCT USED FOR UNKNOWN INDICATION
  11. LOSARTAN POTASSIUM [Concomitant]
     Indication: PRODUCT USED FOR UNKNOWN INDICATION
     Dosage: UNK
     Dates: end: 20100101
  12. RITUXIMAB [Suspect]
     Dosage: 1000 MG/ML, UNK
     Route: 042
     Dates: start: 20101020, end: 20110701
  13. RITUXIMAB [Suspect]
     Indication: SYSTEMIC LUPUS ERYTHEMATOSUS
     Dosage: 1000 MG/ML, UNK
     Route: 042
     Dates: start: 20090708
  14. AZATHIOPRINE [Concomitant]
     Indication: PRODUCT USED FOR UNKNOWN INDICATION
     Dosage: UNK
  15. VIT D [Concomitant]
     Indication: PRODUCT USED FOR UNKNOWN INDICATION
     Dosage: UNK
  16. PHENERGAN [Concomitant]
     Indication: PREMEDICATION
     Dosage: UNK
     Dates: start: 20101020

REACTIONS (16)
  - OEDEMA PERIPHERAL [None]
  - PAIN [None]
  - CARDIOVASCULAR DISORDER [None]
  - EATING DISORDER [None]
  - AGGRESSION [None]
  - DECREASED APPETITE [None]
  - PHARYNGEAL INFLAMMATION [None]
  - BLOOD PRESSURE DECREASED [None]
  - NASOPHARYNGITIS [None]
  - DEPRESSION [None]
  - NAUSEA [None]
  - MALAISE [None]
  - RHINITIS [None]
  - MIGRAINE [None]
  - ERYTHEMA [None]
  - ILL-DEFINED DISORDER [None]
